FAERS Safety Report 10354269 (Version 2)
Quarter: 2014Q3

REPORT INFORMATION
  Report Type: Spontaneous
  Country: GB (occurrence: None)
  Receive Date: 20140729
  Receipt Date: 20140826
  Transmission Date: 20150326
  Serious: Yes (Other)
  Sender: FDA-Public Use
  Company Number: AUR-APL-2014-07943

PATIENT
  Age: 67 Year
  Sex: Male
  Weight: 76.7 kg

DRUGS (2)
  1. SIMVASTATIN 40 MG (SIMVASTATIN) 40 MG [Suspect]
     Active Substance: SIMVASTATIN
     Indication: HYPERCHOLESTEROLAEMIA
     Route: 048
     Dates: start: 20070501, end: 20140618
  2. FLIXONASE (FLUTICASONE PROPIONATE) [Concomitant]

REACTIONS (4)
  - Eructation [None]
  - Chest pain [None]
  - Dizziness [None]
  - Dyspepsia [None]

NARRATIVE: CASE EVENT DATE: 20140519
